FAERS Safety Report 4936625-4 (Version None)
Quarter: 2006Q1

REPORT INFORMATION
  Report Type: 
  Country: None (occurrence: None)
  Receive Date: 20060307
  Receipt Date: 20050914
  Transmission Date: 20060701
  Serious: Yes (Hospitalization, Other)
  Sender: FDA-Public Use
  Company Number: US-MERCK-0509USA01947

PATIENT
  Age: 72 Year
  Sex: Female
  Weight: 73 kg

DRUGS (8)
  1. VIOXX [Suspect]
     Indication: MUSCULOSKELETAL PAIN
     Route: 048
     Dates: start: 19990101, end: 20040401
  2. VIOXX [Suspect]
     Route: 048
     Dates: start: 20000101, end: 20040401
  3. VIOXX [Suspect]
     Route: 048
     Dates: start: 20000101, end: 20040401
  4. VIOXX [Suspect]
     Indication: ARTHRALGIA
     Route: 048
     Dates: start: 19990101, end: 20040401
  5. VIOXX [Suspect]
     Route: 048
     Dates: start: 20000101, end: 20040401
  6. VIOXX [Suspect]
     Route: 048
     Dates: start: 20000101, end: 20040401
  7. VIOXX [Concomitant]
     Route: 048
     Dates: start: 20000101, end: 20040401
  8. VIOXX [Concomitant]
     Route: 048
     Dates: start: 20000101, end: 20040401

REACTIONS (42)
  - ANAEMIA [None]
  - ANOREXIA [None]
  - APHASIA [None]
  - ASTHENIA [None]
  - CANDIDIASIS [None]
  - CARDIAC FAILURE CONGESTIVE [None]
  - CEREBROVASCULAR ACCIDENT [None]
  - CHOLECYSTITIS INFECTIVE [None]
  - CONSTIPATION [None]
  - DECUBITUS ULCER [None]
  - DELIRIUM [None]
  - DEPRESSION [None]
  - DRUG TOXICITY [None]
  - FEAR OF FALLING [None]
  - FEMUR FRACTURE [None]
  - GASTROINTESTINAL HAEMORRHAGE [None]
  - GASTROOESOPHAGEAL REFLUX DISEASE [None]
  - HAEMATURIA [None]
  - HYPERCHOLESTEROLAEMIA [None]
  - HYPERLIPIDAEMIA [None]
  - HYPERTENSION [None]
  - HYPOALBUMINAEMIA [None]
  - HYPOKALAEMIA [None]
  - HYPONATRAEMIA [None]
  - HYPOXIA [None]
  - ILEUS PARALYTIC [None]
  - IMPAIRED GASTRIC EMPTYING [None]
  - INGROWING NAIL [None]
  - MALNUTRITION [None]
  - MASTOIDITIS [None]
  - NAUSEA [None]
  - OBESITY [None]
  - OEDEMA [None]
  - PANCREATITIS [None]
  - POLYARTHRITIS [None]
  - RENAL FAILURE [None]
  - SLEEP APNOEA SYNDROME [None]
  - STATUS EPILEPTICUS [None]
  - THROMBOCYTOPENIA [None]
  - URINARY INCONTINENCE [None]
  - URINARY TRACT INFECTION [None]
  - VOMITING [None]
